FAERS Safety Report 15653304 (Version 3)
Quarter: 2020Q2

REPORT INFORMATION
  Report Type: Spontaneous
  Country: CA (occurrence: CA)
  Receive Date: 20181124
  Receipt Date: 20200422
  Transmission Date: 20200713
  Serious: Yes (Other)
  Sender: FDA-Public Use
  Company Number: CA-ABBVIE-18K-028-2566642-00

PATIENT
  Age: 48 Year
  Sex: Female

DRUGS (12)
  1. HUMIRA [Suspect]
     Active Substance: ADALIMUMAB
     Indication: PRODUCT USED FOR UNKNOWN INDICATION
     Route: 058
  2. CLONAZEPAM. [Suspect]
     Active Substance: CLONAZEPAM
     Indication: PRODUCT USED FOR UNKNOWN INDICATION
     Route: 065
  3. POLYMYXIN B SULFATE. [Suspect]
     Active Substance: POLYMYXIN B SULFATE
     Indication: SKIN LACERATION
     Route: 065
  4. METHOTREXATE. [Suspect]
     Active Substance: METHOTREXATE
     Indication: PRODUCT USED FOR UNKNOWN INDICATION
     Route: 065
  5. CELEBREX [Suspect]
     Active Substance: CELECOXIB
     Indication: PRODUCT USED FOR UNKNOWN INDICATION
     Route: 048
  6. POLYSPORIN [Suspect]
     Active Substance: BACITRACIN ZINC\POLYMYXIN B SULFATE
     Indication: SKIN LACERATION
     Route: 065
  7. ACETAMINOPHEN. [Suspect]
     Active Substance: ACETAMINOPHEN
     Indication: PAIN
     Dosage: EVERY 4-6 HOURS
     Route: 065
  8. ALBENDAZOLE. [Suspect]
     Active Substance: ALBENDAZOLE
     Indication: CARDIOVASCULAR DISORDER
     Route: 065
  9. NEOMYCIN SULFATE. [Suspect]
     Active Substance: NEOMYCIN SULFATE
     Indication: SKIN LACERATION
     Route: 065
  10. RIVAZOL [Suspect]
     Active Substance: ALBENDAZOLE
     Indication: CARDIOVASCULAR DISORDER
     Route: 065
  11. PREDNISONE. [Suspect]
     Active Substance: PREDNISONE
     Indication: PRODUCT USED FOR UNKNOWN INDICATION
     Route: 050
  12. GRAMICIDIN [Suspect]
     Active Substance: GRAMICIDIN
     Indication: SKIN LACERATION
     Route: 065

REACTIONS (15)
  - Alopecia [Not Recovered/Not Resolved]
  - Deformity [Recovered/Resolved]
  - Pain [Not Recovered/Not Resolved]
  - Pneumothorax [Not Recovered/Not Resolved]
  - Knee deformity [Unknown]
  - Gait disturbance [Not Recovered/Not Resolved]
  - Adverse drug reaction [Not Recovered/Not Resolved]
  - Rheumatoid arthritis [Not Recovered/Not Resolved]
  - Skin laceration [Recovered/Resolved]
  - Joint range of motion decreased [Not Recovered/Not Resolved]
  - Spinal fracture [Not Recovered/Not Resolved]
  - Foot deformity [Unknown]
  - Emphysema [Not Recovered/Not Resolved]
  - Wound complication [Not Recovered/Not Resolved]
  - Asthma [Not Recovered/Not Resolved]

NARRATIVE: CASE EVENT DATE: 2009
